FAERS Safety Report 13879168 (Version 1)
Quarter: 2017Q3

REPORT INFORMATION
  Report Type: Report from Study
  Country: US (occurrence: US)
  Receive Date: 20170817
  Receipt Date: 20170817
  Transmission Date: 20171127
  Serious: Yes (Hospitalization, Other)
  Sender: FDA-Public Use
  Company Number: US-GILEAD-2017-0288685

PATIENT
  Age: 81 Year
  Sex: Female

DRUGS (14)
  1. CALTRATE                           /00944201/ [Concomitant]
     Active Substance: CALCIUM CARBONATE\CHOLECALCIFEROL
  2. LOSARTAN. [Concomitant]
     Active Substance: LOSARTAN
  3. PRAVASTATIN. [Concomitant]
     Active Substance: PRAVASTATIN
  4. SPIRIVA [Concomitant]
     Active Substance: TIOTROPIUM BROMIDE MONOHYDRATE
  5. PROTONIX                           /00661201/ [Concomitant]
     Active Substance: OMEPRAZOLE
  6. ANASTROZOLE. [Concomitant]
     Active Substance: ANASTROZOLE
  7. XOPENEX [Concomitant]
     Active Substance: LEVALBUTEROL HYDROCHLORIDE
  8. VITAMIN D                          /00107901/ [Concomitant]
     Active Substance: ERGOCALCIFEROL
  9. ZOMETA [Concomitant]
     Active Substance: ZOLEDRONIC ACID
  10. TYLENOL WITH CODEINE [Concomitant]
     Active Substance: ACETAMINOPHEN\CODEINE PHOSPHATE
  11. HYDROCODONE [Concomitant]
     Active Substance: HYDROCODONE
  12. CENTRUM SILVER                     /02363801/ [Concomitant]
     Active Substance: MINERALS\VITAMINS
  13. AMBRISENTAN [Suspect]
     Active Substance: AMBRISENTAN
     Indication: PULMONARY HYPERTENSION
     Dosage: 10 MG, QD
     Route: 065
     Dates: start: 20111215
  14. IRON [Concomitant]
     Active Substance: IRON

REACTIONS (6)
  - Fall [Unknown]
  - Pelvic fracture [Unknown]
  - Dyspnoea [Unknown]
  - Heart rate increased [Recovering/Resolving]
  - Loss of consciousness [Not Recovered/Not Resolved]
  - Rib fracture [Unknown]

NARRATIVE: CASE EVENT DATE: 20170713
